FAERS Safety Report 19372105 (Version 1)
Quarter: 2021Q2

REPORT INFORMATION
  Report Type: Spontaneous
  Country: US (occurrence: US)
  Receive Date: 20210604
  Receipt Date: 20210604
  Transmission Date: 20210717
  Serious: Yes (Hospitalization, Other)
  Sender: FDA-Public Use
  Company Number: US-JNJFOC-20210325803

PATIENT
  Age: 45 Year
  Sex: Male

DRUGS (1)
  1. PARACETAMOL [Suspect]
     Active Substance: ACETAMINOPHEN
     Indication: PRODUCT USED FOR UNKNOWN INDICATION
     Dosage: INGESTION OF AN UNDETERMINED AMOUNT?ADDITIONAL INFO: OVERDOSE
     Route: 048

REACTIONS (3)
  - Intentional overdose [Unknown]
  - Blood pH decreased [Recovering/Resolving]
  - Blood bicarbonate decreased [Recovering/Resolving]
